FAERS Safety Report 10786868 (Version 2)
Quarter: 2015Q2

REPORT INFORMATION
  Report Type: Spontaneous
  Country: HU (occurrence: HU)
  Receive Date: 20150211
  Receipt Date: 20150410
  Transmission Date: 20150821
  Serious: Yes (Hospitalization)
  Sender: FDA-Public Use
  Company Number: HU-PFIZER INC-2014324679

PATIENT
  Age: 72 Year
  Sex: Male

DRUGS (1)
  1. CARDURA XL [Suspect]
     Active Substance: DOXAZOSIN MESYLATE
     Dosage: UNK

REACTIONS (5)
  - Pain in extremity [Unknown]
  - Large intestine polyp [Unknown]
  - Paraesthesia [Unknown]
  - Vitamin B12 deficiency [Unknown]
  - Decreased appetite [Unknown]

NARRATIVE: CASE EVENT DATE: 201407
